FAERS Safety Report 6756757-8 (Version None)
Quarter: 2010Q2

REPORT INFORMATION
  Report Type: 
  Country: None (occurrence: None)
  Receive Date: 20100603
  Receipt Date: 20100603
  Transmission Date: 20101027
  Serious: Yes (Hospitalization)
  Sender: FDA-Public Use
  Company Number: None

PATIENT
  Sex: Female
  Weight: 72 kg

DRUGS (2)
  1. CARBOPLATIN [Suspect]
     Dosage: 600 MG
     Dates: end: 20100514
  2. TAXOL [Suspect]
     Dosage: 20 ML
     Dates: end: 20100514

REACTIONS (2)
  - PULMONARY EMBOLISM [None]
  - PYREXIA [None]
